FAERS Safety Report 10238321 (Version 4)
Quarter: 2020Q1

REPORT INFORMATION
  Report Type: Spontaneous
  Country: US (occurrence: US)
  Receive Date: 20140616
  Receipt Date: 20200221
  Transmission Date: 20200409
  Serious: Yes (Hospitalization, Other)
  Sender: FDA-Public Use
  Company Number: US-PFIZER INC-2014162200

PATIENT
  Age: 74 Year
  Sex: Female
  Weight: 90.98 kg

DRUGS (12)
  1. DIOVAN [Concomitant]
     Active Substance: VALSARTAN
     Dosage: 1 DF, DAILY
     Dates: start: 2008
  2. DILTIAZEM. [Concomitant]
     Active Substance: DILTIAZEM
     Dosage: 2 DF, DAILY
     Dates: start: 2008
  3. LOVASTATIN. [Concomitant]
     Active Substance: LOVASTATIN
     Dosage: 1 DF, DAILY
     Dates: start: 1970
  4. AMBIEN [Concomitant]
     Active Substance: ZOLPIDEM TARTRATE
     Dosage: 10 MG, DAILY
     Dates: start: 2008
  5. LYRICA [Suspect]
     Active Substance: PREGABALIN
     Indication: NEUROPATHY PERIPHERAL
     Dosage: 50 MG, 4X/DAY
     Dates: start: 200808
  6. LYRICA [Suspect]
     Active Substance: PREGABALIN
     Indication: NEUROPATHY PERIPHERAL
     Dosage: UNK
     Route: 048
  7. FIORINAL [Concomitant]
     Active Substance: ASPIRIN\BUTALBITAL\CAFFEINE
     Indication: HEADACHE
     Dosage: 1 DF, 4X/DAY
     Dates: start: 1978
  8. DOXIFEN [Concomitant]
     Dosage: 175 MG, DAILY (TWO 75 MG AND ONE 25 MG PILLS DAILY)
     Dates: start: 1980
  9. LYRICA [Suspect]
     Active Substance: PREGABALIN
     Indication: POST HERPETIC NEURALGIA
     Dosage: 150 MG, 4X/DAY
     Route: 048
     Dates: start: 2008
  10. LYRICA [Suspect]
     Active Substance: PREGABALIN
     Indication: NEURALGIA
     Dosage: 70 MG, 4X/DAY
     Dates: start: 2008
  11. LEVOTHYROXINE. [Concomitant]
     Active Substance: LEVOTHYROXINE
     Dosage: 1 DF, DAILY
     Dates: start: 1966
  12. ALLOPURINOL. [Concomitant]
     Active Substance: ALLOPURINOL
     Dosage: 1 DF, DAILY
     Dates: start: 1980

REACTIONS (11)
  - Drug dependence [Unknown]
  - Malaise [Unknown]
  - Panic attack [Unknown]
  - Foot fracture [Unknown]
  - Ankle fracture [Recovering/Resolving]
  - Sensation of foreign body [Unknown]
  - Sciatic nerve injury [Recovered/Resolved]
  - Off label use [Unknown]
  - Pneumonia [Unknown]
  - Fall [Recovering/Resolving]
  - Heart rate irregular [Recovered/Resolved]

NARRATIVE: CASE EVENT DATE: 2008
